FAERS Safety Report 6360105-5 (Version None)
Quarter: 2009Q3

REPORT INFORMATION
  Report Type: 
  Country: None (occurrence: None)
  Receive Date: 20090917
  Receipt Date: 20090911
  Transmission Date: 20100115
  Serious: Yes (Hospitalization)
  Sender: FDA-Public Use
  Company Number: PHHY2009DE39477

PATIENT
  Sex: Female

DRUGS (2)
  1. VOLTAREN [Suspect]
     Indication: BACK PAIN
     Dosage: ONLY 1 DOSE
     Route: 048
     Dates: start: 19990101, end: 19990101
  2. VOLTAREN [Suspect]
     Indication: PROPHYLAXIS
     Dosage: UNK
     Route: 048
     Dates: start: 20090801, end: 20090801

REACTIONS (4)
  - CARDIAC OPERATION [None]
  - COLITIS [None]
  - HAEMOGLOBIN DECREASED [None]
  - PLEURISY [None]
